FAERS Safety Report 9806530 (Version 1)
Quarter: 2014Q1

REPORT INFORMATION
  Report Type: Spontaneous
  Country: US (occurrence: US)
  Receive Date: 20140109
  Receipt Date: 20140109
  Transmission Date: 20141002
  Serious: No
  Sender: FDA-Public Use
  Company Number: US-GILEAD-2014-0091516

PATIENT
  Age: 85 Year
  Sex: Female

DRUGS (1)
  1. RANEXA [Suspect]
     Indication: ANGINA PECTORIS
     Dosage: 500 MG, UNK
     Route: 048
     Dates: start: 20131224

REACTIONS (4)
  - Disorientation [Unknown]
  - Unevaluable event [Unknown]
  - Dizziness [Unknown]
  - Confusional state [Unknown]
